FAERS Safety Report 10948087 (Version 1)
Quarter: 2015Q1

REPORT INFORMATION
  Report Type: Spontaneous
  Country: US (occurrence: None)
  Receive Date: 20150320
  Receipt Date: 20150320
  Transmission Date: 20150721
  Serious: Yes (Other)
  Sender: FDA-Public Use
  Company Number: 2015SMT00030

PATIENT
  Age: 61 Year
  Sex: Female
  Weight: 117 kg

DRUGS (2)
  1. REGRANEX [Suspect]
     Active Substance: BECAPLERMIN
     Indication: ULCER
     Dosage: 1 DOSAGE UNITS, 3X/DAY, TOPICAL
     Route: 061
     Dates: start: 20150304, end: 20150307
  2. UNSPECIFIED MEDICATION [Concomitant]
     Active Substance: UNSPECIFIED INGREDIENT

REACTIONS (3)
  - Application site necrosis [None]
  - Inappropriate schedule of drug administration [None]
  - Off label use [None]

NARRATIVE: CASE EVENT DATE: 20150304
